FAERS Safety Report 15107454 (Version 1)
Quarter: 2018Q3

REPORT INFORMATION
  Report Type: Spontaneous
  Country: US (occurrence: US)
  Receive Date: 20180704
  Receipt Date: 20180704
  Transmission Date: 20181010
  Serious: Yes (Other)
  Sender: FDA-Public Use
  Company Number: US-ELI_LILLY_AND_COMPANY-US201806010841

PATIENT
  Age: 45 Year
  Sex: Female

DRUGS (3)
  1. DOXYCYCLINE CALCIUM [Suspect]
     Active Substance: DOXYCYCLINE CALCIUM
     Dosage: 100 U, EACH EVENING
     Route: 048
     Dates: start: 20160426, end: 20160504
  2. CYMBALTA [Suspect]
     Active Substance: DULOXETINE HYDROCHLORIDE
     Indication: PRODUCT USED FOR UNKNOWN INDICATION
     Dosage: UNK, UNKNOWN
     Route: 065
  3. DOXYCYCLINE CALCIUM [Suspect]
     Active Substance: DOXYCYCLINE CALCIUM
     Indication: RESPIRATORY TRACT INFECTION
     Dosage: 100 U, EACH MORNING
     Route: 048
     Dates: start: 20160426, end: 20160504

REACTIONS (4)
  - Vomiting [Recovered/Resolved]
  - Drug hypersensitivity [Unknown]
  - Nausea [Unknown]
  - Suicidal ideation [Unknown]

NARRATIVE: CASE EVENT DATE: 20180426
